FAERS Safety Report 12647956 (Version 1)
Quarter: 2016Q3

REPORT INFORMATION
  Report Type: Spontaneous
  Country: AR (occurrence: AR)
  Receive Date: 20160812
  Receipt Date: 20160812
  Transmission Date: 20161109
  Serious: Yes (Hospitalization, Other)
  Sender: FDA-Public Use
  Company Number: AR-GILEAD-2016-0227658

PATIENT
  Age: 69 Year
  Sex: Female

DRUGS (1)
  1. AMBRISENTAN [Suspect]
     Active Substance: AMBRISENTAN
     Indication: PULMONARY ARTERIAL HYPERTENSION
     Dosage: 10 MG, QD
     Route: 065
     Dates: start: 2014

REACTIONS (4)
  - Cataract [Recovered/Resolved with Sequelae]
  - Disease progression [Unknown]
  - Pneumonia [Unknown]
  - Gait disturbance [Unknown]
